FAERS Safety Report 6143717-3 (Version None)
Quarter: 2009Q2

REPORT INFORMATION
  Report Type: 
  Country: None (occurrence: None)
  Receive Date: 20090403
  Receipt Date: 20090401
  Transmission Date: 20091009
  Serious: Yes (Death)
  Sender: FDA-Public Use
  Company Number: AT-ABBOTT-09P-009-0501340-00

PATIENT
  Sex: Male
  Weight: 84 kg

DRUGS (1)
  1. TRENANTONE [Suspect]
     Indication: PROSTATE CANCER METASTATIC
     Route: 058
     Dates: start: 20020101, end: 20021201

REACTIONS (1)
  - DEATH [None]
